FAERS Safety Report 25422407 (Version 1)
Quarter: 2025Q2

REPORT INFORMATION
  Report Type: Spontaneous
  Country: US (occurrence: None)
  Receive Date: 20250610
  Receipt Date: 20250610
  Transmission Date: 20250717
  Serious: Yes (Hospitalization)
  Sender: FDA-CTU
  Company Number: None

PATIENT
  Age: 83 Year
  Sex: Male

DRUGS (1)
  1. DABIGATRAN ETEXILATE [Suspect]
     Active Substance: DABIGATRAN ETEXILATE
     Indication: Deep vein thrombosis
     Dosage: FREQUENCY : TWICE A DAY;?
     Route: 048
     Dates: start: 20250508, end: 20250527

REACTIONS (10)
  - Anaemia [None]
  - Gastrointestinal haemorrhage [None]
  - Lethargy [None]
  - Blood urea nitrogen/creatinine ratio increased [None]
  - Haemoglobin decreased [None]
  - Gastritis [None]
  - Oesophagitis [None]
  - Arteriovenous malformation [None]
  - Peptic ulcer [None]
  - Melaena [None]

NARRATIVE: CASE EVENT DATE: 20250527
